FAERS Safety Report 19092317 (Version 1)
Quarter: 2021Q2

REPORT INFORMATION
  Report Type: Spontaneous
  Country: IN (occurrence: IN)
  Receive Date: 20210405
  Receipt Date: 20210405
  Transmission Date: 20210717
  Serious: Yes (Death, Life-Threatening, Hospitalization, Other)
  Sender: FDA-Public Use
  Company Number: IN-ACCORD-221291

PATIENT
  Sex: Female

DRUGS (3)
  1. CICLOSPORIN [Suspect]
     Active Substance: CYCLOSPORINE
     Indication: PSORIASIS
     Dates: start: 201504
  2. METHOTREXATE. [Suspect]
     Active Substance: METHOTREXATE
     Indication: PSORIASIS
     Dosage: OFF AND ON
     Dates: start: 2002, end: 201502
  3. DEFLAZACORT [Concomitant]
     Active Substance: DEFLAZACORT
     Indication: PSORIASIS
     Dates: start: 201504

REACTIONS (4)
  - Cellulitis [Unknown]
  - Thrombocytopenia [Unknown]
  - Pancytopenia [Unknown]
  - Myelodysplastic syndrome [Fatal]

NARRATIVE: CASE EVENT DATE: 201502
